FAERS Safety Report 14145402 (Version 1)
Quarter: 2017Q4

REPORT INFORMATION
  Report Type: Report from Study
  Country: US (occurrence: BR)
  Receive Date: 20171031
  Receipt Date: 20171031
  Transmission Date: 20180321
  Serious: Yes (Hospitalization, Other)
  Sender: FDA-Public Use
  Company Number: US-SUNOVION-2017SUN004671

PATIENT
  Age: 77 Year
  Sex: Female

DRUGS (1)
  1. GLYCOPYRROLATE. [Suspect]
     Active Substance: GLYCOPYRROLATE
     Indication: PRODUCT USED FOR UNKNOWN INDICATION
     Dosage: UNK, REGIMEN #1
     Route: 055

REACTIONS (10)
  - Thyroid disorder [Unknown]
  - Diabetes mellitus [Unknown]
  - Hypertension [Unknown]
  - Dizziness [Unknown]
  - Emphysema [Unknown]
  - Pneumonia [Unknown]
  - Osteopenia [Unknown]
  - Angina pectoris [Unknown]
  - Cataract [Unknown]
  - Dysphonia [Unknown]

NARRATIVE: CASE EVENT DATE: 201609
